FAERS Safety Report 9192369 (Version 3)
Quarter: 2013Q2

REPORT INFORMATION
  Report Type: Spontaneous
  Country: FI (occurrence: FI)
  Receive Date: 20130327
  Receipt Date: 20130514
  Transmission Date: 20140414
  Serious: Yes (Death, Other)
  Sender: FDA-Public Use
  Company Number: FI-ELI_LILLY_AND_COMPANY-FI201303006664

PATIENT
  Age: 48 Year
  Sex: Male

DRUGS (8)
  1. ZYPREXA [Suspect]
     Dosage: 20 MG, BID
     Route: 048
  2. SERDOLECT [Concomitant]
     Dosage: 20 MG, UNKNOWN
     Route: 048
  3. KALEORID [Concomitant]
     Dosage: 1 G, UNKNOWN
     Route: 048
  4. MICARDIS [Concomitant]
     Dosage: 40 MG, UNKNOWN
     Route: 048
  5. PARA-TABS [Concomitant]
     Dosage: 500 MG, PRN
  6. TEMESTA [Concomitant]
     Dosage: 1 MG, PRN
  7. ATARAX [Concomitant]
     Dosage: 25 MG, PRN
  8. ZOPINOX [Concomitant]
     Dosage: 7.5 MG, PRN

REACTIONS (4)
  - Cardiomegaly [Fatal]
  - Hypertension [Unknown]
  - Delusional disorder, unspecified type [Unknown]
  - Prescribed overdose [Unknown]
